FAERS Safety Report 7587323-2 (Version None)
Quarter: 2011Q3

REPORT INFORMATION
  Report Type: 
  Country: None (occurrence: None)
  Receive Date: 20110701
  Receipt Date: 20110616
  Transmission Date: 20111222
  Serious: Yes (Other)
  Sender: FDA-Public Use
  Company Number: CA-GENENTECH-320921

PATIENT
  Sex: Male
  Weight: 90.4 kg

DRUGS (3)
  1. XOLAIR [Suspect]
     Dosage: 375 MG, X3
     Route: 058
     Dates: start: 20101020, end: 20101020
  2. XOLAIR [Suspect]
     Indication: BRONCHIAL HYPERREACTIVITY
     Dosage: UNK
     Dates: start: 20100101
  3. XOLAIR [Suspect]
     Dosage: UNK UNK, UNK
     Dates: start: 20101001

REACTIONS (6)
  - URTICARIA [None]
  - PRURITUS [None]
  - SKIN OEDEMA [None]
  - INJECTION SITE ERYTHEMA [None]
  - FLUSHING [None]
  - ERYTHEMA [None]
